FAERS Safety Report 6837723-0 (Version None)
Quarter: 2010Q3

REPORT INFORMATION
  Report Type: 
  Country: None (occurrence: None)
  Receive Date: 20100713
  Receipt Date: 20070521
  Transmission Date: 20110219
  Serious: No
  Sender: FDA-Public Use
  Company Number: US-PFIZER INC-2007041277

PATIENT
  Sex: Female
  Weight: 54.4 kg

DRUGS (4)
  1. CHANTIX [Suspect]
     Indication: SMOKING CESSATION THERAPY
     Route: 048
     Dates: start: 20070520
  2. EFFEXOR [Concomitant]
  3. LIPITOR [Concomitant]
  4. TEMAZEPAM [Concomitant]

REACTIONS (4)
  - DIZZINESS [None]
  - MOUTH ULCERATION [None]
  - NAUSEA [None]
  - TONGUE ULCERATION [None]
